FAERS Safety Report 20047479 (Version 2)
Quarter: 2021Q4

REPORT INFORMATION
  Report Type: Report from Study
  Country: US (occurrence: None)
  Receive Date: 20211109
  Receipt Date: 20211112
  Transmission Date: 20220303
  Serious: Yes (Hospitalization)
  Sender: FDA-Public Use
  Company Number: US-ROCHE-2948076

PATIENT
  Sex: Male
  Weight: 88.530 kg

DRUGS (3)
  1. TOCILIZUMAB [Suspect]
     Active Substance: TOCILIZUMAB
     Indication: Malignant melanoma
     Dosage: ON 26/OCT/2021, THE PATIENT RECEIVED MOST RECENT DOSE OF TOCILIZUMAB PRIOR TO ADVERSE EVENT.
     Route: 042
     Dates: start: 20210914
  2. IPILIMUMAB [Suspect]
     Active Substance: IPILIMUMAB
     Indication: Malignant melanoma
     Dosage: ON 26/OCT/2021, THE PATIENT RECEIVED MOST RECENT DOSE OF IPILIMUMAB PRIOR TO ADVERSE EVENT.
     Route: 042
     Dates: start: 20210914
  3. NIVOLUMAB [Suspect]
     Active Substance: NIVOLUMAB
     Indication: Malignant melanoma
     Dosage: ON 26/OCT/2021, THE PATIENT RECEIVED MOST RECENT DOSE OF NIVOLUMAB PRIOR TO ADVERSE EVENT.
     Route: 042
     Dates: start: 20210914

REACTIONS (1)
  - Hyperglycaemia [Recovered/Resolved with Sequelae]

NARRATIVE: CASE EVENT DATE: 20211020
